FAERS Safety Report 25444208 (Version 2)
Quarter: 2025Q3

REPORT INFORMATION
  Report Type: Spontaneous
  Country: US (occurrence: US)
  Receive Date: 20250617
  Receipt Date: 20250702
  Transmission Date: 20251020
  Serious: No
  Sender: ABBVIE
  Company Number: US-ABBVIE-6328799

PATIENT
  Age: 59 Year
  Sex: Female

DRUGS (2)
  1. HUMIRA [Suspect]
     Active Substance: ADALIMUMAB
     Indication: Connective tissue disorder
     Dosage: FORM STRENGTH: 40 MILLIGRAM
     Route: 058
     Dates: start: 202412
  2. HUMIRA [Suspect]
     Active Substance: ADALIMUMAB
     Route: 058

REACTIONS (6)
  - Fatigue [Recovering/Resolving]
  - Arthralgia [Recovering/Resolving]
  - Off label use [Unknown]
  - Product storage error [Unknown]
  - Musculoskeletal stiffness [Recovering/Resolving]
  - Pain [Recovering/Resolving]

NARRATIVE: CASE EVENT DATE: 20250601
